FAERS Safety Report 7929304-2 (Version None)
Quarter: 2011Q4

REPORT INFORMATION
  Report Type: 
  Country: None (occurrence: None)
  Receive Date: 20111121
  Receipt Date: 20111110
  Transmission Date: 20120403
  Serious: No
  Sender: FDA-Public Use
  Company Number: US-BIOGENIDEC-2011BI043098

PATIENT
  Age: 51 Year
  Sex: Female

DRUGS (3)
  1. TYSABRI [Suspect]
  2. TYSABRI [Suspect]
     Indication: MULTIPLE SCLEROSIS
     Route: 042
     Dates: start: 20080903, end: 20090529
  3. TYSABRI [Suspect]
     Route: 042
     Dates: start: 20091211

REACTIONS (6)
  - MUSCULAR WEAKNESS [None]
  - BALANCE DISORDER [None]
  - FALL [None]
  - WRIST FRACTURE [None]
  - CENTRAL NERVOUS SYSTEM LESION [None]
  - FOOT FRACTURE [None]
